APPROVED DRUG PRODUCT: VALPROATE SODIUM
Active Ingredient: VALPROATE SODIUM
Strength: EQ 100MG BASE/ML
Dosage Form/Route: INJECTABLE;INJECTION
Application: A078523 | Product #001 | TE Code: AP
Applicant: HIKMA FARMACEUTICA (PORTUGAL) SA
Approved: Feb 17, 2010 | RLD: No | RS: Yes | Type: RX